FAERS Safety Report 9438607 (Version 2)
Quarter: 2013Q3

REPORT INFORMATION
  Report Type: Spontaneous
  Country: US (occurrence: US)
  Receive Date: 20130802
  Receipt Date: 20130911
  Transmission Date: 20140515
  Serious: Yes (Hospitalization, Other)
  Sender: FDA-Public Use
  Company Number: US-PFIZER INC-2013224294

PATIENT
  Age: 53 Year
  Sex: Female
  Weight: 112 kg

DRUGS (19)
  1. CHANTIX [Suspect]
     Indication: SMOKING CESSATION THERAPY
     Dosage: 0.5 MG, 1X/DAY
     Route: 048
     Dates: start: 2012, end: 2012
  2. PLAVIX [Concomitant]
     Dosage: UNK
  3. KLONOPIN [Concomitant]
     Dosage: UNK
  4. METOPROLOL [Concomitant]
     Indication: HYPERTENSION
     Dosage: UNK
  5. LORTAB [Concomitant]
     Dosage: UNK
  6. GLYBURIDE [Concomitant]
     Dosage: UNK
  7. LODINE [Concomitant]
     Dosage: UNK
  8. SPIRIVA [Concomitant]
     Dosage: UNK
  9. HUMALOG MIX 75/25 [Concomitant]
     Dosage: UNK
  10. REQUIP [Concomitant]
     Dosage: UNK
  11. JANUMET [Concomitant]
     Dosage: UNK
  12. IMDUR [Concomitant]
     Dosage: UNK
  13. ADVAIR [Concomitant]
     Dosage: UNK
  14. PROTONIX [Concomitant]
     Dosage: UNK
  15. WELLBUTRIN [Concomitant]
     Dosage: UNK
  16. LAMICTAL [Concomitant]
     Dosage: UNK
  17. LIPITOR [Concomitant]
     Dosage: UNK
  18. TOPAMAX [Concomitant]
     Dosage: UNK
  19. TEGRETOL [Concomitant]
     Dosage: UNK

REACTIONS (4)
  - Pneumonia [Recovered/Resolved]
  - Bronchitis [Recovered/Resolved]
  - Asthma [Recovered/Resolved]
  - Chronic obstructive pulmonary disease [Unknown]
